FAERS Safety Report 4345767-6 (Version None)
Quarter: 2004Q2

REPORT INFORMATION
  Report Type: 
  Country: None (occurrence: None)
  Receive Date: 20040421
  Receipt Date: 20040415
  Transmission Date: 20050107
  Serious: Yes (Death, Life-Threatening, Hospitalization)
  Sender: FDA-Public Use
  Company Number: HQWYE472615APR04

PATIENT
  Age: 58 Year
  Sex: Female

DRUGS (6)
  1. CORDARONE [Suspect]
     Indication: ATRIAL FIBRILLATION
     Dosage: 200 MG 1 X PER 1 DAY
     Route: 048
  2. CORDARONE [Suspect]
     Indication: ATRIAL FLUTTER
     Dosage: 200 MG 1 X PER 1 DAY
     Route: 048
  3. LASIX [Suspect]
     Indication: HYPERTENSION
     Dosage: 40 MG 1 X PER 1 DAY
     Route: 048
  4. TAREG (VALSARTAN) [Suspect]
     Indication: HYPERTENSION
     Dosage: 1 DF DAILY
     Route: 048
  5. PREVISCAN (FLUINDIONE) [Concomitant]
  6. CLACIPARINE ^SANOFI^ (HEPARIN CALCIUM) [Concomitant]

REACTIONS (3)
  - EXTENSOR PLANTAR RESPONSE [None]
  - HAEMORRHAGE INTRACRANIAL [None]
  - HYDROCEPHALUS [None]
